FAERS Safety Report 8223446-2 (Version None)
Quarter: 2012Q1

REPORT INFORMATION
  Report Type: 
  Country: None (occurrence: None)
  Receive Date: 20120316
  Receipt Date: 20120307
  Transmission Date: 20120608
  Serious: Yes (Hospitalization, Other)
  Sender: FDA-Public Use
  Company Number: AUR-APL-2012-01312

PATIENT
  Age: 79 Year
  Sex: Female

DRUGS (5)
  1. METFORMIN HCL [Suspect]
     Indication: PRODUCT USED FOR UNKNOWN INDICATION
     Dosage: 2000 MG (2000 MG, 1 IN 1 D), ORAL
     Route: 048
     Dates: end: 20111223
  2. RAMIPRIL [Concomitant]
  3. HALOPERIDOL [Suspect]
     Indication: PRODUCT USED FOR UNKNOWN INDICATION
     Dosage: 2 MG (2 MG, 1 IN 1 D), ORAL
     Route: 048
     Dates: start: 20111216, end: 20111223
  4. PANTOPRAZOLE SODIUM [Concomitant]
  5. METHOTREXATE SODIUM [Suspect]
     Indication: PRODUCT USED FOR UNKNOWN INDICATION
     Dosage: (1 IN 7 D),
     Dates: end: 20111219

REACTIONS (13)
  - DRUG ADMINISTRATION ERROR [None]
  - BLOOD BILIRUBIN INCREASED [None]
  - HEPATOTOXICITY [None]
  - GENERAL PHYSICAL HEALTH DETERIORATION [None]
  - C-REACTIVE PROTEIN INCREASED [None]
  - BILIRUBIN CONJUGATED INCREASED [None]
  - LIPASE INCREASED [None]
  - DIET REFUSAL [None]
  - LIVER INJURY [None]
  - DISTURBANCE IN ATTENTION [None]
  - HEPATIC ENZYME INCREASED [None]
  - JAUNDICE [None]
  - ABNORMAL BEHAVIOUR [None]
